FAERS Safety Report 7570357-1 (Version None)
Quarter: 2011Q2

REPORT INFORMATION
  Report Type: 
  Country: None (occurrence: None)
  Receive Date: 20110620
  Receipt Date: 20110603
  Transmission Date: 20111010
  Serious: Yes (Life-Threatening, Hospitalization)
  Sender: FDA-Public Use
  Company Number: 2011MA006772

PATIENT
  Age: 10 Month
  Sex: Female

DRUGS (1)
  1. PROPRANOLOL HCL [Suspect]
     Indication: HAEMANGIOMA

REACTIONS (12)
  - DYSPNOEA [None]
  - UNRESPONSIVE TO STIMULI [None]
  - COUGH [None]
  - RESPIRATORY SYNCYTIAL VIRUS INFECTION [None]
  - PALLOR [None]
  - HYPOGLYCAEMIA [None]
  - FEELING COLD [None]
  - COLD SWEAT [None]
  - NAUSEA [None]
  - VOMITING [None]
  - CONVULSION [None]
  - RHINORRHOEA [None]
